FAERS Safety Report 8620400-3 (Version None)
Quarter: 2012Q3

REPORT INFORMATION
  Report Type: 
  Country: None (occurrence: None)
  Receive Date: 20120824
  Receipt Date: 20120816
  Transmission Date: 20120928
  Serious: Yes (Hospitalization)
  Sender: FDA-Public Use
  Company Number: JP-GLAXOSMITHKLINE-B0801212A

PATIENT
  Sex: Female

DRUGS (2)
  1. TYKERB [Suspect]
     Indication: BREAST CANCER RECURRENT
     Dosage: 1250MG PER DAY
     Route: 048
     Dates: start: 20091207, end: 20120501
  2. XELODA [Concomitant]
     Indication: BREAST CANCER RECURRENT
     Dosage: 2400MG PER DAY
     Route: 048
     Dates: start: 20091207, end: 20120501

REACTIONS (3)
  - THROMBOCYTOPENIA [None]
  - WHITE BLOOD CELL COUNT DECREASED [None]
  - RED BLOOD CELL COUNT DECREASED [None]
